FAERS Safety Report 10577102 (Version 1)
Quarter: 2014Q4

REPORT INFORMATION
  Report Type: Spontaneous
  Country: CN (occurrence: CN)
  Receive Date: 20141111
  Receipt Date: 20141111
  Transmission Date: 20150529
  Serious: Yes (Life-Threatening, Other)
  Sender: FDA-Public Use
  Company Number: CN-GLAXOSMITHKLINE-CN2014GSK015293

PATIENT
  Age: 36 Year
  Sex: Female
  Weight: 56 kg

DRUGS (3)
  1. ZINACEF [Suspect]
     Active Substance: CEFUROXIME SODIUM
     Indication: PROPHYLAXIS
     Dosage: 1.5 G, SINGLE
     Route: 042
     Dates: start: 20130223, end: 20130223
  2. LIDOCAINE HYDROCHLORIDE INJECTION [Concomitant]
     Indication: ANAESTHESIA
     Dosage: 300 MG, SINGLE
     Dates: start: 20130223, end: 20130223
  3. SODIUM CHLORIDE. [Concomitant]
     Active Substance: SODIUM CHLORIDE
     Indication: PRODUCT USED FOR UNKNOWN INDICATION
     Dosage: 250 ML, 60 DRIPS/MIN
     Dates: start: 20130223

REACTIONS (18)
  - Electrocardiogram ST segment elevation [Unknown]
  - Heart rate abnormal [Unknown]
  - Blood pressure abnormal [Unknown]
  - Anaphylactic shock [Recovering/Resolving]
  - Pulmonary oedema [Recovering/Resolving]
  - Pallor [Unknown]
  - Productive cough [Unknown]
  - Heart rate increased [Unknown]
  - Rales [Unknown]
  - Ischaemia [Unknown]
  - Headache [Unknown]
  - Cardiac failure [Recovering/Resolving]
  - Dizziness [Unknown]
  - Rash [Unknown]
  - Shock [Recovering/Resolving]
  - Nausea [Unknown]
  - Vomiting [Unknown]
  - Myocardial infarction [Unknown]

NARRATIVE: CASE EVENT DATE: 20130223
